FAERS Safety Report 10657087 (Version 2)
Quarter: 2015Q1

REPORT INFORMATION
  Report Type: Report from Study
  Country: US (occurrence: US)
  Receive Date: 20141217
  Receipt Date: 20150101
  Transmission Date: 20150720
  Serious: Yes (Hospitalization)
  Sender: FDA-Public Use
  Company Number: US-BIOGENIDEC-2014BI129011

PATIENT
  Age: 17 Year
  Sex: Female

DRUGS (1)
  1. TECFIDERA [Suspect]
     Active Substance: DIMETHYL FUMARATE
     Indication: MULTIPLE SCLEROSIS
     Route: 048
     Dates: start: 20141016

REACTIONS (4)
  - Drug administered to patient of inappropriate age [Unknown]
  - Multiple sclerosis relapse [Recovered/Resolved]
  - Gastrooesophageal reflux disease [Unknown]
  - Flushing [Unknown]

NARRATIVE: CASE EVENT DATE: 20141024
